FAERS Safety Report 25136952 (Version 2)
Quarter: 2025Q4

REPORT INFORMATION
  Report Type: Spontaneous
  Country: US (occurrence: US)
  Receive Date: 20250328
  Receipt Date: 20251222
  Transmission Date: 20260117
  Serious: Yes (Hospitalization)
  Sender: MERCK SHARP & DOHME LLC
  Company Number: US-009507513-2263353

PATIENT
  Age: 71 Year
  Sex: Male
  Weight: 81.9 kg

DRUGS (3)
  1. KEYTRUDA [Suspect]
     Active Substance: PEMBROLIZUMAB
     Indication: Squamous cell carcinoma of head and neck
     Route: 042
     Dates: start: 20241216, end: 20250106
  2. AUGMENTIN [Concomitant]
     Active Substance: AMOXICILLIN\CLAVULANATE POTASSIUM
     Indication: Pneumonia
     Dosage: 875-125 MG
     Route: 048
     Dates: start: 20250113
  3. COREG [Concomitant]
     Active Substance: CARVEDILOL
     Indication: Varices oesophageal
     Route: 048
     Dates: start: 20250206

REACTIONS (2)
  - Hypoxia [Recovered/Resolved]
  - Hepatic enzyme increased [Recovered/Resolved]

NARRATIVE: CASE EVENT DATE: 20250114
